FAERS Safety Report 21596778 (Version 1)
Quarter: 2022Q4

REPORT INFORMATION
  Report Type: Report from Study
  Country: GB (occurrence: GB)
  Receive Date: 20221115
  Receipt Date: 20221115
  Transmission Date: 20230113
  Serious: Yes (Hospitalization, Other)
  Sender: FDA-Public Use
  Company Number: GB-TAKEDA-2022TUS083760

PATIENT
  Sex: Male

DRUGS (12)
  1. IDURSULFASE [Suspect]
     Active Substance: IDURSULFASE
     Indication: Mucopolysaccharidosis II
     Dosage: 0.49 MILLIGRAM/KILOGRAM, 1/WEEK
     Route: 042
     Dates: start: 20090421
  2. IDURSULFASE [Suspect]
     Active Substance: IDURSULFASE
     Dosage: 0.36 MILLIGRAM/KILOGRAM, 1/WEEK
     Route: 042
     Dates: start: 20131212, end: 202112
  3. HYDROXYZINE [Concomitant]
     Active Substance: HYDROXYZINE HYDROCHLORIDE
     Indication: Premedication
     Dosage: UNK
     Route: 048
     Dates: start: 20090421
  4. ACETAMINOPHEN [Concomitant]
     Active Substance: ACETAMINOPHEN
     Indication: Premedication
     Dosage: UNK
     Route: 048
     Dates: start: 20090421
  5. MELATONIN [Concomitant]
     Active Substance: MELATONIN
     Indication: Sleep disorder
     Dosage: UNK
     Route: 048
     Dates: start: 201009
  6. IBUPROFEN [Concomitant]
     Active Substance: IBUPROFEN
     Indication: Adverse drug reaction
     Dosage: UNK
     Route: 065
     Dates: start: 20131212
  7. RANITIDINE [Concomitant]
     Active Substance: RANITIDINE
     Indication: Adverse drug reaction
     Dosage: UNK
     Route: 065
     Dates: start: 20131212
  8. CHLORPHENIRAMINE MALEATE [Concomitant]
     Active Substance: CHLORPHENIRAMINE MALEATE
     Indication: Adverse drug reaction
     Dosage: UNK
     Dates: start: 20131212
  9. EMLA [Concomitant]
     Active Substance: LIDOCAINE\PRILOCAINE
     Indication: Adverse drug reaction
     Dosage: UNK
     Route: 065
     Dates: start: 20131212
  10. CIMETIDINE [Concomitant]
     Active Substance: CIMETIDINE
     Dosage: UNK
     Route: 048
     Dates: start: 2020
  11. OMEPRAZOLE [Concomitant]
     Active Substance: OMEPRAZOLE
     Dosage: UNK
     Route: 048
     Dates: start: 20201202
  12. MONTELUKAST [Concomitant]
     Active Substance: MONTELUKAST SODIUM
     Dosage: UNK
     Route: 048
     Dates: start: 20211215

REACTIONS (1)
  - Seizure [Recovered/Resolved]

NARRATIVE: CASE EVENT DATE: 20210309
